FAERS Safety Report 24417776 (Version 1)
Quarter: 2024Q4

REPORT INFORMATION
  Report Type: Spontaneous
  Country: US (occurrence: None)
  Receive Date: 20241009
  Receipt Date: 20241009
  Transmission Date: 20250115
  Serious: Yes (Hospitalization)
  Sender: Public
  Company Number: None

PATIENT
  Age: 56 Year
  Sex: Female

DRUGS (10)
  1. CAPECITABINE [Suspect]
     Active Substance: CAPECITABINE
     Indication: Colorectal cancer stage III
     Route: 048
     Dates: start: 20240912
  2. albuterol inhaler [Concomitant]
  3. docusate 100mg caps [Concomitant]
  4. multivitamin [Concomitant]
  5. oxaliplatin infusion [Concomitant]
  6. xarelto 20 mg [Concomitant]
  7. lorazapam 0.5mg tab [Concomitant]
  8. lomotil tabs [Concomitant]
  9. DEXAMETHASONE [Concomitant]
     Active Substance: DEXAMETHASONE
  10. dicyclomine 10mg [Concomitant]

REACTIONS (2)
  - Gait inability [None]
  - Oedema peripheral [None]

NARRATIVE: CASE EVENT DATE: 20241008
